FAERS Safety Report 23689703 (Version 1)
Quarter: 2024Q1

REPORT INFORMATION
  Report Type: Spontaneous
  Country: JP (occurrence: JP)
  Receive Date: 20240331
  Receipt Date: 20240331
  Transmission Date: 20240410
  Serious: Yes (Other)
  Sender: FDA-Public Use
  Company Number: JP-BRISTOL-MYERS SQUIBB COMPANY-2024-047104

PATIENT
  Age: 59 Year
  Sex: Male

DRUGS (1)
  1. BREYANZI [Suspect]
     Active Substance: LISOCABTAGENE MARALEUCEL
     Indication: High-grade B-cell lymphoma
     Route: 041

REACTIONS (5)
  - Atypical lymphocytes increased [Unknown]
  - Pancytopenia [Recovering/Resolving]
  - Bone marrow failure [Recovering/Resolving]
  - Haemophagocytic lymphohistiocytosis [Recovering/Resolving]
  - Sepsis [Unknown]
